FAERS Safety Report 7635604-6 (Version None)
Quarter: 2011Q3

REPORT INFORMATION
  Report Type: 
  Country: None (occurrence: None)
  Receive Date: 20110726
  Receipt Date: 20110713
  Transmission Date: 20111222
  Serious: Yes (Other)
  Sender: FDA-Public Use
  Company Number: PHHY2011IR63349

PATIENT
  Age: 54 Year
  Sex: Female

DRUGS (5)
  1. PREDNISOLONE [Concomitant]
     Dosage: 1 MG/KG, PER DAY
  2. PREDNISOLONE [Concomitant]
     Dosage: 0.1 MG/KG/DAY
  3. CYCLOSPORINE [Suspect]
     Indication: RENAL TRANSPLANT
     Dosage: UNK UKN, UNK
  4. PREDNISOLONE [Concomitant]
     Dosage: UNK UKN, UNK
  5. MYCOPHENOLATE MOFETIL [Concomitant]
     Dosage: UNK UKN, UNK

REACTIONS (11)
  - WEIGHT BEARING DIFFICULTY [None]
  - GOUTY TOPHUS [None]
  - JOINT RANGE OF MOTION DECREASED [None]
  - CREATININE RENAL CLEARANCE DECREASED [None]
  - ARTHRALGIA [None]
  - SOFT TISSUE MASS [None]
  - OSTEOPOROSIS [None]
  - JOINT SWELLING [None]
  - BLOOD CREATININE INCREASED [None]
  - CRYSTAL URINE [None]
  - BLOOD URIC ACID INCREASED [None]
